FAERS Safety Report 9377597 (Version 1)
Quarter: 2013Q3

REPORT INFORMATION
  Report Type: Spontaneous
  Country: FR (occurrence: FR)
  Receive Date: 20130701
  Receipt Date: 20130701
  Transmission Date: 20140515
  Serious: Yes (Other)
  Sender: FDA-Public Use
  Company Number: PHHY2013FR059290

PATIENT
  Sex: Female

DRUGS (3)
  1. ACLASTA [Suspect]
     Indication: OSTEOPOROSIS
     Dosage: UNK
     Route: 042
     Dates: start: 20130522
  2. FIXICAL [Concomitant]
     Indication: OSTEOPOROSIS
     Dosage: UNK UKN, UNK
     Route: 048
  3. PIASCLEDINE [Concomitant]
     Indication: OSTEOARTHRITIS
     Dosage: UNK UKN, UNK
     Route: 048

REACTIONS (4)
  - Tooth fracture [Not Recovered/Not Resolved]
  - Pain in jaw [Recovered/Resolved]
  - Pain [Unknown]
  - Malaise [Unknown]
